FAERS Safety Report 18673754 (Version 1)
Quarter: 2020Q4

REPORT INFORMATION
  Report Type: Other
  Country: FR (occurrence: FR)
  Receive Date: 20201229
  Receipt Date: 20201229
  Transmission Date: 20210114
  Serious: Yes (Hospitalization)
  Sender: FDA-Public Use
  Company Number: FR-CADILA HEALTHCARE LIMITED-FR-ZYDUS-059878

PATIENT

DRUGS (3)
  1. GABAPENTINE [Suspect]
     Active Substance: GABAPENTIN
     Indication: BEHAVIOUR DISORDER
     Dosage: 900 MILLIGRAM, QD
     Route: 048
     Dates: start: 201911
  2. LOXAPAC [LOXAPINE] [Suspect]
     Active Substance: LOXAPINE
     Indication: AGGRESSION
     Dosage: 15 GTT DROPS, QD
     Route: 048
     Dates: start: 201911, end: 20200721
  3. DIAZEPAM. [Suspect]
     Active Substance: DIAZEPAM
     Indication: BEHAVIOUR DISORDER
     Dosage: 9 GTT DROPS, QD
     Route: 048
     Dates: start: 201911, end: 20200721

REACTIONS (2)
  - Somnolence [Recovered/Resolved]
  - Apathy [Recovered/Resolved]

NARRATIVE: CASE EVENT DATE: 20200721
